FAERS Safety Report 14418047 (Version 2)
Quarter: 2018Q1

REPORT INFORMATION
  Report Type: Report from Study
  Country: CA (occurrence: CA)
  Receive Date: 20180122
  Receipt Date: 20180305
  Transmission Date: 20180509
  Serious: Yes (Hospitalization)
  Sender: FDA-Public Use
  Company Number: CA-JNJFOC-20171228738

PATIENT
  Age: 59 Year
  Sex: Male
  Weight: 61 kg

DRUGS (1)
  1. REMICADE [Suspect]
     Active Substance: INFLIXIMAB
     Indication: COLITIS ULCERATIVE
     Route: 042
     Dates: start: 20170703

REACTIONS (4)
  - Pneumonia [Unknown]
  - Pleural effusion [Unknown]
  - Adverse event [Unknown]
  - Tuberculosis [Unknown]

NARRATIVE: CASE EVENT DATE: 20171219
